FAERS Safety Report 6124893-5 (Version None)
Quarter: 2009Q1

REPORT INFORMATION
  Report Type: 
  Country: None (occurrence: None)
  Receive Date: 20090319
  Receipt Date: 20090316
  Transmission Date: 20090719
  Serious: Yes (Death)
  Sender: FDA-Public Use
  Company Number: US-GILEAD-2009-0020889

PATIENT
  Sex: Male
  Weight: 52.21 kg

DRUGS (10)
  1. LETAIRIS [Suspect]
     Indication: PULMONARY ARTERIAL HYPERTENSION
     Route: 048
     Dates: start: 20081203
  2. ALBUTEROL [Concomitant]
  3. ADVAIR HFA [Concomitant]
  4. MEGESTROL ACETATE [Concomitant]
  5. PREDNISONE [Concomitant]
  6. DOXYCYCLINE [Concomitant]
  7. CELEXA [Concomitant]
  8. VICODIN [Concomitant]
  9. BENADRYL [Concomitant]
  10. NASAL SPRAY [Concomitant]

REACTIONS (1)
  - DEATH [None]
